FAERS Safety Report 16882209 (Version 1)
Quarter: 2019Q4

REPORT INFORMATION
  Report Type: Spontaneous
  Country: JP (occurrence: JP)
  Receive Date: 20191003
  Receipt Date: 20191003
  Transmission Date: 20200122
  Serious: Yes (Other)
  Sender: FDA-Public Use
  Company Number: JP-BRISTOL-MYERS SQUIBB COMPANY-BMS-2019-093287

PATIENT
  Age: 82 Year
  Sex: Female

DRUGS (2)
  1. KENACORT-A [Suspect]
     Active Substance: TRIAMCINOLONE ACETONIDE
     Indication: ROTATOR CUFF SYNDROME
     Dosage: 20 MILLIGRAM AND 0.5 ML
     Route: 065
  2. CARBOCAINE [Suspect]
     Active Substance: MEPIVACAINE HYDROCHLORIDE
     Indication: ROTATOR CUFF SYNDROME
     Dosage: 5 MILLILITER
     Route: 065

REACTIONS (1)
  - Resorption bone increased [Unknown]
